FAERS Safety Report 4730613-9 (Version None)
Quarter: 2005Q3

REPORT INFORMATION
  Report Type: 
  Country: None (occurrence: None)
  Receive Date: 20050801
  Receipt Date: 20050513
  Transmission Date: 20060218
  Serious: Yes (Hospitalization)
  Sender: FDA-Public Use
  Company Number: RU-BOEHRINGER INGELHEIM PHARMACEUTICALS, INC.-2005-AP-00291AP

PATIENT
  Sex: Female
  Weight: 60 kg

DRUGS (4)
  1. SPIRIVA [Suspect]
     Indication: BRONCHITIS CHRONIC
     Route: 055
     Dates: start: 20050323, end: 20050330
  2. FLIXOTIDE [Concomitant]
     Indication: ASTHMA
     Route: 055
     Dates: start: 20050105
  3. BEROTEC [Concomitant]
     Indication: BRONCHITIS CHRONIC
     Route: 055
     Dates: start: 20050105
  4. FORADIL [Concomitant]
     Indication: ASTHMA
     Route: 055
     Dates: start: 20050105, end: 20050322

REACTIONS (5)
  - ASTHMA [None]
  - BACK PAIN [None]
  - CONDITION AGGRAVATED [None]
  - MUCOSAL DRYNESS [None]
  - TACHYARRHYTHMIA [None]
